FAERS Safety Report 6233131-4 (Version None)
Quarter: 2009Q2

REPORT INFORMATION
  Report Type: 
  Country: None (occurrence: None)
  Receive Date: 20090612
  Receipt Date: 20090610
  Transmission Date: 20091009
  Serious: Yes (Death, Hospitalization)
  Sender: FDA-Public Use
  Company Number: 2008SP019926

PATIENT
  Age: 53 Year
  Sex: Female
  Weight: 65.9 kg

DRUGS (5)
  1. TEMODAR [Suspect]
     Indication: GLIOBLASTOMA MULTIFORME
     Dosage: PO
     Route: 048
     Dates: start: 20080811, end: 20080903
  2. TEMODAR [Suspect]
     Indication: GLIOBLASTOMA MULTIFORME
     Dosage: PO
     Route: 048
     Dates: start: 20071210
  3. DECADRON [Suspect]
     Indication: BRAIN OEDEMA
     Dosage: 4 MG;BID
     Dates: start: 20080731
  4. BACTRIM [Suspect]
     Indication: DRUG USE FOR UNKNOWN INDICATION
  5. DEPAKOTE [Concomitant]

REACTIONS (12)
  - ASPIRATION [None]
  - CONFUSIONAL STATE [None]
  - COUGH [None]
  - DYSPNOEA [None]
  - FALL [None]
  - FOOT DEFORMITY [None]
  - HYPOTENSION [None]
  - HYPOXIA [None]
  - INCONTINENCE [None]
  - LETHARGY [None]
  - MENTAL STATUS CHANGES [None]
  - PNEUMOCYSTIS JIROVECI PNEUMONIA [None]
